FAERS Safety Report 9513408 (Version 1)
Quarter: 2013Q3

REPORT INFORMATION
  Report Type: Spontaneous
  Country: US (occurrence: US)
  Receive Date: 20130910
  Receipt Date: 20130910
  Transmission Date: 20140515
  Serious: No
  Sender: FDA-Public Use
  Company Number: US-TARO-2012P1053724

PATIENT
  Age: 72 Year
  Sex: Female
  Weight: 74.84 kg

DRUGS (9)
  1. WARFARIN SODIUM TABLETS USP 2MG [Suspect]
     Route: 048
     Dates: start: 20120730, end: 201208
  2. WARFARIN SODIUM TABLETS USP 2MG [Suspect]
     Route: 048
     Dates: start: 20120730, end: 201208
  3. QUINAPRIL [Concomitant]
  4. FUROSEMIDE [Concomitant]
  5. CALCITROL [Concomitant]
  6. FLECAINIDE [Concomitant]
  7. PRAVASTATIN [Concomitant]
  8. ATENOLOL [Concomitant]
  9. ALLOPURINOL [Concomitant]

REACTIONS (3)
  - International normalised ratio decreased [Recovered/Resolved]
  - Weight increased [Unknown]
  - Product substitution issue [Recovered/Resolved]
